FAERS Safety Report 21424660 (Version 1)
Quarter: 2022Q4

REPORT INFORMATION
  Report Type: Report from Study
  Country: US (occurrence: US)
  Receive Date: 20221007
  Receipt Date: 20221007
  Transmission Date: 20230112
  Serious: No
  Sender: FDA-Public Use
  Company Number: US-ABBVIE-4136526

PATIENT
  Sex: Female

DRUGS (1)
  1. SKYRIZI [Suspect]
     Active Substance: RISANKIZUMAB-RZAA
     Indication: Psoriasis
     Dosage: WEEK 0?DOSING: 150MG/ML SQ AT WEEK 0, WEEK 4 THEN EVERY 12 WEEKS.
     Route: 058
     Dates: start: 20220914

REACTIONS (1)
  - Headache [Unknown]
